FAERS Safety Report 9206870 (Version 1)
Quarter: 2013Q2

REPORT INFORMATION
  Report Type: Spontaneous
  Country: DE (occurrence: DE)
  Receive Date: 20130403
  Receipt Date: 20130403
  Transmission Date: 20140414
  Serious: Yes (Other)
  Sender: FDA-Public Use
  Company Number: DE-ELI_LILLY_AND_COMPANY-DE201304000826

PATIENT
  Sex: Male

DRUGS (15)
  1. CYMBALTA [Suspect]
     Indication: MAJOR DEPRESSION
     Dosage: 90 MG, UNKNOWN
     Route: 048
     Dates: start: 20130103, end: 20130203
  2. CYMBALTA [Interacting]
     Dosage: 120 MG, UNKNOWN
     Route: 048
     Dates: start: 20130204
  3. AMITRIPTYLIN [Interacting]
     Dosage: 25 MG, UNK
     Dates: start: 20130114, end: 20130121
  4. AMITRIPTYLIN [Interacting]
     Dosage: 50 MG, UNK
     Dates: start: 20130122, end: 20130128
  5. ASS [Concomitant]
     Dosage: 100 MG, UNK
  6. L-THYROXIN [Concomitant]
     Dosage: 50 UG, UNK
  7. PANTOPRAZOL [Interacting]
     Dosage: 40 MG, UNK
  8. HCT HEXAL [Interacting]
     Dosage: 25 MG, UNK
     Dates: end: 20130129
  9. HCT HEXAL [Interacting]
     Dosage: 12.5 MG, UNK
     Dates: start: 20130130
  10. BISOPROLOL [Interacting]
     Dosage: 2.5 MG, UNK
  11. RAMIPRIL [Interacting]
     Dosage: 5 MG, UNK
     Dates: end: 20130129
  12. RAMIPRIL [Interacting]
     Dosage: 2.5 MG, UNK
     Dates: start: 20130129
  13. SAROTEN [Interacting]
     Dosage: 300 MG, UNK
  14. CORTISONE [Concomitant]
  15. ALLOPURINOL [Concomitant]
     Dosage: 300 MG, UNK

REACTIONS (4)
  - Fall [Recovered/Resolved]
  - Hypotension [Unknown]
  - Joint dislocation [Unknown]
  - Potentiating drug interaction [Recovered/Resolved]
